FAERS Safety Report 25582472 (Version 1)
Quarter: 2025Q3

REPORT INFORMATION
  Report Type: Spontaneous
  Country: EU (occurrence: EU)
  Receive Date: 20250720
  Receipt Date: 20250720
  Transmission Date: 20251020
  Serious: Yes (Congenital Anomaly, Other)
  Sender: STRIDES
  Company Number: EU-STRIDES ARCOLAB LIMITED-2025SP008916

PATIENT

DRUGS (1)
  1. IBUPROFEN [Suspect]
     Active Substance: IBUPROFEN
     Indication: Product used for unknown indication
     Route: 064

REACTIONS (7)
  - Congenital pulmonary airway malformation [Unknown]
  - Patent ductus arteriosus [Unknown]
  - Neonatal cardiac failure [Unknown]
  - Pericardial effusion [Unknown]
  - Bundle branch block right [Unknown]
  - Pulmonary arterial hypertension [Unknown]
  - Foetal exposure during pregnancy [Unknown]
